FAERS Safety Report 8937866 (Version 1)
Quarter: 2012Q4

REPORT INFORMATION
  Report Type: 
  Country: US (occurrence: US)
  Receive Date: 20121203
  Receipt Date: 20121203
  Transmission Date: 20130627
  Serious: Yes (Hospitalization)
  Sender: FDA-Public Use
  Company Number: US-MYLANLABS-2012S1024188

PATIENT
  Age: 54 Year
  Sex: Female

DRUGS (21)
  1. ZIDOVUDINE [Suspect]
     Indication: HIV INFECTION
     Route: 065
  2. STAVUDINE [Suspect]
     Indication: HIV INFECTION
     Route: 065
  3. DIDANOSINE [Suspect]
     Indication: HIV INFECTION
     Route: 065
  4. HYDROXYCARBAMIDE [Suspect]
     Indication: HIV INFECTION
     Route: 065
  5. NEVIRAPINE [Suspect]
     Indication: HIV INFECTION
     Route: 065
  6. TENOFOVIR [Suspect]
     Indication: HIV INFECTION
     Route: 065
  7. EMTRICITABINE [Suspect]
     Indication: HIV INFECTION
     Route: 065
  8. KALETRA [Suspect]
     Indication: HIV INFECTION
     Route: 065
  9. LAMIVUDINE [Suspect]
     Indication: HIV INFECTION
     Route: 065
  10. INDINAVIR [Suspect]
     Indication: HIV INFECTION
     Route: 065
  11. NELFINAVIR [Suspect]
     Indication: HIV INFECTION
     Route: 065
  12. SAQUINAVIR [Suspect]
     Indication: HIV INFECTION
     Route: 065
  13. ACETAZOLAMIDE [Concomitant]
     Indication: PRODUCT USED FOR UNKNOWN INDICATION
     Route: 065
  14. FLUCONAZOLE [Concomitant]
     Indication: PRODUCT USED FOR UNKNOWN INDICATION
     Route: 065
  15. NAPROXEN [Concomitant]
     Indication: PRODUCT USED FOR UNKNOWN INDICATION
     Route: 065
  16. GABAPENTIN [Concomitant]
     Indication: PRODUCT USED FOR UNKNOWN INDICATION
     Route: 065
  17. NORTRIPTYLINE [Concomitant]
     Indication: PRODUCT USED FOR UNKNOWN INDICATION
     Route: 065
  18. CALCIDO [Concomitant]
     Indication: PRODUCT USED FOR UNKNOWN INDICATION
     Route: 065
  19. TRAZODONE [Concomitant]
     Indication: PRODUCT USED FOR UNKNOWN INDICATION
     Route: 065
  20. LIDOCAINE [Concomitant]
     Indication: PRODUCT USED FOR UNKNOWN INDICATION
     Dosage: 5%
     Route: 062
  21. FEXOFENADINE [Concomitant]
     Indication: PRODUCT USED FOR UNKNOWN INDICATION
     Route: 065

REACTIONS (6)
  - Myocardial infarction [Recovered/Resolved]
  - Coronary artery disease [Recovered/Resolved]
  - Blood potassium decreased [None]
  - Blood phosphorus decreased [None]
  - Carbon dioxide decreased [None]
  - White blood cell count increased [None]
